FAERS Safety Report 5972717-9 (Version None)
Quarter: 2008Q4

REPORT INFORMATION
  Report Type: 
  Country: None (occurrence: None)
  Receive Date: 20081125
  Receipt Date: 20081112
  Transmission Date: 20090506
  Serious: Yes (Hospitalization, Other)
  Sender: FDA-Public Use
  Company Number: GXKR2008NL10967

PATIENT
  Age: 61 Year
  Sex: Male

DRUGS (3)
  1. GABAPENTIN [Suspect]
     Dosage: ORAL
     Route: 048
     Dates: start: 20061017, end: 20061017
  2. GABAPENTIN [Suspect]
     Dosage: ORAL
     Route: 048
     Dates: start: 20061019, end: 20061019
  3. NEURONTIN [Concomitant]

REACTIONS (5)
  - CARDIAC DISORDER [None]
  - DYSPNOEA [None]
  - LOOSE TOOTH [None]
  - MUSCLE SPASMS [None]
  - TACHYCARDIA [None]
